FAERS Safety Report 24110419 (Version 13)
Quarter: 2025Q4

REPORT INFORMATION
  Report Type: Spontaneous
  Country: CA (occurrence: CA)
  Receive Date: 20240718
  Receipt Date: 20251022
  Transmission Date: 20260117
  Serious: Yes (Hospitalization)
  Sender: CELLTRION
  Company Number: CA-PFIZER INC-202400034879

PATIENT

DRUGS (24)
  1. INFLIXIMAB [Suspect]
     Active Substance: INFLIXIMAB
     Indication: Colitis ulcerative
     Dosage: 10 MG/KG
     Route: 042
  2. INFLIXIMAB [Suspect]
     Active Substance: INFLIXIMAB
     Dosage: 10 MG/KG
     Route: 042
  3. INFLIXIMAB [Suspect]
     Active Substance: INFLIXIMAB
     Dosage: 10 MG/KG
     Route: 042
  4. INFLIXIMAB [Suspect]
     Active Substance: INFLIXIMAB
     Dosage: 800 MILLIGRAM
     Route: 042
  5. INFLIXIMAB [Suspect]
     Active Substance: INFLIXIMAB
     Dosage: 800 MILLIGRAM
     Route: 042
  6. INFLIXIMAB [Suspect]
     Active Substance: INFLIXIMAB
     Dosage: 800 MILLIGRAM
     Route: 042
  7. INFLIXIMAB [Suspect]
     Active Substance: INFLIXIMAB
     Dosage: 800 MILLIGRAM
     Route: 042
  8. INFLIXIMAB [Suspect]
     Active Substance: INFLIXIMAB
     Dosage: 10 MG/KG
     Route: 042
  9. INFLIXIMAB [Suspect]
     Active Substance: INFLIXIMAB
     Dosage: 10 MG/KG
     Route: 042
  10. INFLIXIMAB [Suspect]
     Active Substance: INFLIXIMAB
     Dosage: 800 MILLIGRAM
     Route: 042
  11. INFLECTRA [Suspect]
     Active Substance: INFLIXIMAB-DYYB
     Indication: Colitis ulcerative
     Dosage: 10 MG/KG, W 0, 2, 6, THEN EVERY 8 WEEKS, HOSPITAL START
     Dates: start: 20240204
  12. INFLECTRA [Suspect]
     Active Substance: INFLIXIMAB-DYYB
     Dosage: 10 MG/KG, 0, 2, 6, THEN EVERY 8 WEEKS, HOSPITAL START
     Dates: start: 20240219
  13. INFLECTRA [Suspect]
     Active Substance: INFLIXIMAB-DYYB
     Dosage: 10 MG/KG (800 MG), WEEK 6 (0, 2, 6, THEN EVERY 8 WEEKS, HOSPITAL START)
     Dates: start: 20240318
  14. INFLECTRA [Suspect]
     Active Substance: INFLIXIMAB-DYYB
     Dosage: 10 MG/KG, W 0, 2, 6, THEN EVERY 8 WEEKS, HOSPITAL START
     Dates: start: 20240513
  15. INFLECTRA [Suspect]
     Active Substance: INFLIXIMAB-DYYB
     Dosage: 10 MG/KG, W 0, 2, 6, THEN EVERY 8 WEEKS, HOSPITAL START
     Dates: start: 20240513
  16. INFLECTRA [Suspect]
     Active Substance: INFLIXIMAB-DYYB
     Dosage: 800 MG, 10 WEEKS AND 2 DAYS (10 MG/KG, W 0, 2, 6, THEN EVERY 8 WEEKS, HOSPITAL START)
     Dates: start: 20240724
  17. INFLECTRA [Suspect]
     Active Substance: INFLIXIMAB-DYYB
     Dosage: 800 MG, EVERY 8 WEEKS (SUPPOSED TO RECEIVE 10 MG/KG ROUNDED TO THE NEAREST HUNDRED) (W 0, 2, 6 WKS
     Dates: start: 20240918
  18. INFLECTRA [Suspect]
     Active Substance: INFLIXIMAB-DYYB
     Dosage: 800 MG,AFTER 13 WEEKS(10MG/KG,0, 2, 6 WEEKS THEN EVERY 8 WEEKS)
     Dates: start: 20241218
  19. INFLECTRA [Suspect]
     Active Substance: INFLIXIMAB-DYYB
     Dosage: 800 MG, AFTER 9 WEEKS AND 6 DAYS (10 MG/KG, W 0, 2, 6 WEEKS THEN EVERY 8 WEEKS, HOSPITAL START)
     Dates: start: 20250225
  20. INFLECTRA [Suspect]
     Active Substance: INFLIXIMAB-DYYB
     Dosage: 800 MG AFTER 8 WEEKS (10 MG/KG W 0, 2, 6 WEEKS THEN EVERY 8 WEEKS, HOSPITAL START)
     Dates: start: 20250422
  21. INFLECTRA [Suspect]
     Active Substance: INFLIXIMAB-DYYB
     Dosage: 10 MG/KG W 0, 2, 6 WEEKS THEN EVERY 8 WEEKS, HOSPITAL START
     Dates: start: 20250812
  22. PREDNISONE [Concomitant]
     Active Substance: PREDNISONE
     Dosage: UNK
     Dates: start: 20240129
  23. PREDNISONE [Concomitant]
     Active Substance: PREDNISONE
     Dosage: 50 MG
  24. PREDNISONE [Concomitant]
     Active Substance: PREDNISONE

REACTIONS (16)
  - Haemorrhage [Recovered/Resolved]
  - Blood pressure increased [Recovered/Resolved]
  - Blood pressure systolic decreased [Recovered/Resolved]
  - Oropharyngeal pain [Recovered/Resolved]
  - Headache [Recovered/Resolved]
  - Infection [Recovered/Resolved]
  - Hypotension [Recovered/Resolved]
  - Maternal exposure during pregnancy [Recovered/Resolved]
  - Incorrect dose administered [Recovered/Resolved]
  - Inappropriate schedule of product administration [Recovered/Resolved]
  - Gastritis [Not Recovered/Not Resolved]
  - Vomiting [Not Recovered/Not Resolved]
  - Diarrhoea [Not Recovered/Not Resolved]
  - Viral infection [Unknown]
  - Overdose [Unknown]
  - Intentional product use issue [Unknown]

NARRATIVE: CASE EVENT DATE: 20240101
